FAERS Safety Report 10305766 (Version 2)
Quarter: 2014Q3

REPORT INFORMATION
  Report Type: Spontaneous
  Country: CA (occurrence: CA)
  Receive Date: 20140715
  Receipt Date: 20140814
  Transmission Date: 20150326
  Serious: Yes (Other)
  Sender: FDA-Public Use
  Company Number: CA-ASTELLAS-2014US008262

PATIENT
  Age: 48 Year
  Sex: Male

DRUGS (1)
  1. PROGRAF [Suspect]
     Active Substance: TACROLIMUS\TACROLIMUS ANHYDROUS
     Indication: RENAL TRANSPLANT
     Dosage: 2 MG, BID
     Route: 048
     Dates: start: 200607

REACTIONS (4)
  - Poor peripheral circulation [Unknown]
  - Transplant failure [Unknown]
  - Finger amputation [Recovered/Resolved]
  - Fistula [Unknown]

NARRATIVE: CASE EVENT DATE: 201208
